FAERS Safety Report 25774589 (Version 2)
Quarter: 2025Q3

REPORT INFORMATION
  Report Type: Spontaneous
  Country: US (occurrence: US)
  Receive Date: 20250908
  Receipt Date: 20250909
  Transmission Date: 20251020
  Serious: No
  Sender: PFIZER
  Company Number: US-PFIZER INC-202500176139

PATIENT
  Sex: Female

DRUGS (1)
  1. PAXLOVID [Suspect]
     Active Substance: NIRMATRELVIR\RITONAVIR
     Indication: COVID-19 treatment
     Dates: start: 20250808, end: 20250812

REACTIONS (7)
  - Oral pain [Unknown]
  - Stomatitis [Unknown]
  - Toothache [Unknown]
  - Oral discomfort [Unknown]
  - Tooth infection [Unknown]
  - Oral infection [Unknown]
  - Gingival discomfort [Unknown]

NARRATIVE: CASE EVENT DATE: 20250808
